FAERS Safety Report 15369038 (Version 2)
Quarter: 2018Q3

REPORT INFORMATION
  Report Type: Report from Study
  Country: AT (occurrence: AT)
  Receive Date: 20180911
  Receipt Date: 20180914
  Transmission Date: 20181010
  Serious: Yes (Hospitalization)
  Sender: FDA-Public Use
  Company Number: AT-ROCHE-2178716

PATIENT
  Age: 79 Year
  Sex: Male
  Weight: 53.8 kg

DRUGS (14)
  1. ENTEROBENE [Concomitant]
     Route: 048
     Dates: start: 20180205
  2. ERYCYTOL DEPOT [Concomitant]
     Route: 065
     Dates: start: 201705
  3. LASILACTON [Concomitant]
     Active Substance: FUROSEMIDE\SPIRONOLACTONE
     Dosage: TOTAL DAILY DOSE 1 TAB
     Route: 048
     Dates: start: 20171011
  4. MYCOSTATIN [Concomitant]
     Active Substance: NYSTATIN
     Route: 065
     Dates: start: 20170831
  5. SULFAMETROLE/TRIMETHOPRIM [Concomitant]
     Route: 065
     Dates: start: 20171103
  6. LIDAPRIM FORTE [Concomitant]
  7. VENETOCLAX. [Suspect]
     Active Substance: VENETOCLAX
     Indication: CHRONIC LYMPHOCYTIC LEUKAEMIA
     Dosage: LAST DAILY DOSE 400 MG?CYCLE 1: 20 MG (2 TABL. AT 10 MG), D22?28, Q28D?CYCLE 2: 50 MG (1 TABL. AT 50
     Route: 048
     Dates: start: 20171106
  8. SINVASTATINA [Concomitant]
     Active Substance: SIMVASTATIN
     Route: 048
     Dates: start: 201405
  9. TARDYFERON (AUSTRIA) [Concomitant]
  10. ONDANSETRON [Concomitant]
     Active Substance: ONDANSETRON
     Route: 065
  11. OBINUTUZUMAB. [Suspect]
     Active Substance: OBINUTUZUMAB
     Indication: CHRONIC LYMPHOCYTIC LEUKAEMIA
     Dosage: CYCLE 1: 100 MG, D1; 900 MG, D1(2); 1000 MG, D8+15, Q28D?CYCLES 2?6: 1000 MG, D1, Q28D?LAST DAILY DO
     Route: 042
     Dates: start: 20171016, end: 20180309
  12. IBRUTINIB [Suspect]
     Active Substance: IBRUTINIB
     Indication: CHRONIC LYMPHOCYTIC LEUKAEMIA
     Dosage: LAST DAILY DOSE 420 MG?CYCLES 1?12: 420 MG, D1?28, Q28D?CYCLES 13?36: 420 MG, D1?28, Q28D
     Route: 048
     Dates: start: 20171016
  13. PANTOLOC [Concomitant]
     Active Substance: PANTOPRAZOLE SODIUM
     Route: 048
     Dates: start: 20170831
  14. FOLIC ACID. [Concomitant]
     Active Substance: FOLIC ACID
     Route: 065
     Dates: start: 20170902

REACTIONS (1)
  - Infection [Recovering/Resolving]

NARRATIVE: CASE EVENT DATE: 20180825
